FAERS Safety Report 12094152 (Version 1)
Quarter: 2016Q1

REPORT INFORMATION
  Report Type: Spontaneous
  Country: SE (occurrence: SE)
  Receive Date: 20160219
  Receipt Date: 20160219
  Transmission Date: 20160526
  Serious: Yes (Hospitalization)
  Sender: FDA-Public Use
  Company Number: SE-ASTRAZENECA-2016SE15030

PATIENT
  Age: 63 Year
  Sex: Male
  Weight: 78 kg

DRUGS (12)
  1. BRILIQUE [Suspect]
     Active Substance: TICAGRELOR
     Indication: ARTERIAL STENT INSERTION
     Route: 048
     Dates: start: 20151111
  2. TROMBYL [Concomitant]
     Active Substance: ASPIRIN
  3. METFORMIN [Concomitant]
     Active Substance: METFORMIN HYDROCHLORIDE
  4. IMDUR [Concomitant]
     Active Substance: ISOSORBIDE MONONITRATE
  5. CARDIZEM [Concomitant]
     Active Substance: DILTIAZEM HYDROCHLORIDE
  6. OMEPRAZOLE. [Concomitant]
     Active Substance: OMEPRAZOLE
  7. OXASCAND [Concomitant]
     Active Substance: OXAZEPAM
  8. METOPROLOL. [Concomitant]
     Active Substance: METOPROLOL
  9. ATORVASTATIN [Concomitant]
     Active Substance: ATORVASTATIN
  10. CANDESARTAN [Concomitant]
     Active Substance: CANDESARTAN
  11. SUSCARD [Concomitant]
     Active Substance: NITROGLYCERIN
  12. NITROLINGUAL [Concomitant]
     Active Substance: NITROGLYCERIN

REACTIONS (5)
  - Contusion [Unknown]
  - Epistaxis [Unknown]
  - Headache [Unknown]
  - Dizziness [Unknown]
  - Chest pain [Not Recovered/Not Resolved]

NARRATIVE: CASE EVENT DATE: 20151116
